FAERS Safety Report 4760947-3 (Version None)
Quarter: 2005Q3

REPORT INFORMATION
  Report Type: 
  Country: None (occurrence: None)
  Receive Date: 20050901
  Receipt Date: 20050824
  Transmission Date: 20060218
  Serious: Yes (Life-Threatening, Hospitalization)
  Sender: FDA-Public Use
  Company Number: 163-20785-03110194

PATIENT
  Age: 65 Year
  Sex: Female

DRUGS (11)
  1. THALOMID [Suspect]
     Indication: MULTIPLE MYELOMA
     Dosage: DAILY, ORAL
     Route: 048
     Dates: start: 20050401, end: 20050601
  2. THALOMID [Suspect]
     Indication: MULTIPLE MYELOMA
     Dosage: DAILY, ORAL
     Route: 048
     Dates: start: 20031001
  3. THALOMID [Suspect]
     Indication: MULTIPLE MYELOMA
     Dosage: DAILY, ORAL
     Route: 048
     Dates: start: 20040101
  4. DECADRON [Suspect]
     Indication: MULTIPLE MYELOMA
     Dates: start: 20041201, end: 20050301
  5. DECADRON [Suspect]
     Indication: MULTIPLE MYELOMA
     Dates: start: 20050401, end: 20050601
  6. DECADRON [Suspect]
     Indication: MULTIPLE MYELOMA
     Dates: start: 20031001
  7. DECADRON [Suspect]
     Indication: MULTIPLE MYELOMA
     Dates: start: 20040101
  8. VELCADE [Suspect]
     Indication: MULTIPLE MYELOMA
     Dates: start: 20040101, end: 20040101
  9. CYCLOPHOSPHAMIDE [Suspect]
     Indication: MULTIPLE MYELOMA
     Dates: start: 20041201, end: 20050301
  10. DOXORUBICIN HCL [Suspect]
     Indication: MULTIPLE MYELOMA
     Dates: start: 20041201, end: 20050301
  11. VINCRISTINE [Suspect]
     Indication: MULTIPLE MYELOMA
     Dates: start: 20041201, end: 20050301

REACTIONS (7)
  - BONE MARROW TRANSPLANT [None]
  - DISEASE PROGRESSION [None]
  - INTESTINAL PERFORATION [None]
  - NEUROPATHY [None]
  - PANCYTOPENIA [None]
  - PROTEINURIA [None]
  - THERAPY NON-RESPONDER [None]
